FAERS Safety Report 5134524-9 (Version None)
Quarter: 2006Q4

REPORT INFORMATION
  Report Type: 
  Country: None (occurrence: None)
  Receive Date: 20061025
  Receipt Date: 20060727
  Transmission Date: 20070319
  Serious: Yes (Hospitalization, Disabling, Other)
  Sender: FDA-Public Use
  Company Number: US-AVENTIS-200616350US

PATIENT
  Sex: Female

DRUGS (9)
  1. LANTUS [Suspect]
     Indication: DIABETES MELLITUS INSULIN-DEPENDENT
     Route: 058
  2. OPTICLIK (INSULIN INJECTION PEN) [Suspect]
     Indication: DIABETES MELLITUS INSULIN-DEPENDENT
  3. SYNTHROID [Concomitant]
     Dosage: DOSE: UNKNOWN
  4. PREMARIN                           /00073001/ [Concomitant]
     Dosage: DOSE: UNKNOWN
  5. DIOVANE [Concomitant]
     Dosage: DOSE: UNKNOWN
  6. FUROSEMIDE [Concomitant]
     Dosage: DOSE: UNKNOWN
  7. VYTORIN [Concomitant]
     Dosage: DOSE: UNKNOWN
  8. NEXIUM [Concomitant]
     Dosage: DOSE: UNKNOWN
  9. HUMALOG                            /00030501/ [Concomitant]
     Dosage: DOSE: UNKNOWN

REACTIONS (5)
  - BASEDOW'S DISEASE [None]
  - BLINDNESS [None]
  - DEVICE FAILURE [None]
  - DIPLOPIA [None]
  - PHARMACEUTICAL PRODUCT COMPLAINT [None]
